FAERS Safety Report 4522975-2 (Version None)
Quarter: 2004Q4

REPORT INFORMATION
  Report Type: 
  Country: None (occurrence: None)
  Receive Date: 20041210
  Receipt Date: 20041130
  Transmission Date: 20050328
  Serious: Yes (Other)
  Sender: FDA-Public Use
  Company Number: US-JNJFOC-20041100954

PATIENT

DRUGS (12)
  1. REMICADE [Suspect]
     Indication: CROHN'S DISEASE
  2. MESALAMINE [Concomitant]
  3. 6-MP [Concomitant]
  4. EFFEXOR [Concomitant]
  5. MULTI-VITAMINS [Concomitant]
  6. MULTI-VITAMINS [Concomitant]
  7. MULTI-VITAMINS [Concomitant]
  8. MULTI-VITAMINS [Concomitant]
  9. MULTI-VITAMINS [Concomitant]
  10. MULTI-VITAMINS [Concomitant]
  11. MULTI-VITAMINS [Concomitant]
  12. MULTI-VITAMINS [Concomitant]

REACTIONS (7)
  - CAESAREAN SECTION [None]
  - CEREBELLAR HAEMORRHAGE [None]
  - DRUG EXPOSURE DURING PREGNANCY [None]
  - DUCTUS ARTERIOSUS PREMATURE CLOSURE [None]
  - MENINGORRHAGIA [None]
  - PREMATURE BABY [None]
  - TREMOR [None]
